FAERS Safety Report 15960566 (Version 2)
Quarter: 2019Q1

REPORT INFORMATION
  Report Type: Spontaneous
  Country: US (occurrence: US)
  Receive Date: 20190214
  Receipt Date: 20190221
  Transmission Date: 20190417
  Serious: Yes (Other)
  Sender: FDA-Public Use
  Company Number: US-HORIZON-VIM-0078-2019

PATIENT
  Sex: Male

DRUGS (13)
  1. ACIPHEX [Suspect]
     Active Substance: RABEPRAZOLE SODIUM
     Route: 065
     Dates: start: 2010, end: 2012
  2. METOPROLOL. [Concomitant]
     Active Substance: METOPROLOL
  3. NEXIUM [Suspect]
     Active Substance: ESOMEPRAZOLE MAGNESIUM
     Route: 048
     Dates: start: 20110920
  4. CLONIDINE. [Concomitant]
     Active Substance: CLONIDINE
  5. NEXIUM [Suspect]
     Active Substance: ESOMEPRAZOLE MAGNESIUM
     Route: 048
     Dates: start: 2010, end: 2012
  6. VIMOVO [Suspect]
     Active Substance: ESOMEPRAZOLE MAGNESIUM\NAPROXEN
     Indication: PRODUCT USED FOR UNKNOWN INDICATION
     Route: 048
     Dates: start: 2010, end: 2012
  7. CALCITRIOL. [Concomitant]
     Active Substance: CALCITRIOL
  8. COLCHICINE. [Concomitant]
     Active Substance: COLCHICINE
  9. NORVASC [Concomitant]
     Active Substance: AMLODIPINE BESYLATE
  10. SILDENAFIL. [Concomitant]
     Active Substance: SILDENAFIL
  11. VALSARTAN. [Concomitant]
     Active Substance: VALSARTAN
  12. ULORIC [Concomitant]
     Active Substance: FEBUXOSTAT
  13. NEXIUM [Suspect]
     Active Substance: ESOMEPRAZOLE MAGNESIUM
     Route: 048
     Dates: start: 20101208

REACTIONS (3)
  - Renal failure [Unknown]
  - Chronic kidney disease [Unknown]
  - End stage renal disease [Unknown]
